FAERS Safety Report 7063143-2 (Version None)
Quarter: 2010Q4

REPORT INFORMATION
  Report Type: 
  Country: None (occurrence: None)
  Receive Date: 20101026
  Receipt Date: 20100601
  Transmission Date: 20110411
  Serious: Yes (Other)
  Sender: FDA-Public Use
  Company Number: US-PFIZER INC-2010063288

PATIENT
  Sex: Male

DRUGS (4)
  1. LIPITOR [Suspect]
     Dosage: UNK
     Route: 048
  2. MOTRIN IB [Suspect]
     Dosage: UNK
     Route: 048
  3. ACETAMINOPHEN [Suspect]
     Dosage: UNK
     Route: 048
  4. ACETAMINOPHEN [Suspect]
     Route: 065

REACTIONS (1)
  - JAUNDICE [None]
